FAERS Safety Report 21128971 (Version 2)
Quarter: 2022Q3

REPORT INFORMATION
  Report Type: Spontaneous
  Country: GB (occurrence: None)
  Receive Date: 20220725
  Receipt Date: 20220729
  Transmission Date: 20221027
  Serious: Yes (Other)
  Sender: FDA-Public Use
  Company Number: GB-ROCHE-3146274

PATIENT
  Sex: Female

DRUGS (1)
  1. TOCILIZUMAB [Suspect]
     Active Substance: TOCILIZUMAB
     Indication: Rheumatoid arthritis
     Route: 058
     Dates: start: 20170117

REACTIONS (5)
  - Memory impairment [Unknown]
  - Neoplasm malignant [Unknown]
  - Arthropathy [Unknown]
  - Dementia [Unknown]
  - Back disorder [Unknown]
